FAERS Safety Report 13268900 (Version 3)
Quarter: 2017Q2

REPORT INFORMATION
  Report Type: Report from Study
  Country: JP (occurrence: JP)
  Receive Date: 20170224
  Receipt Date: 20170613
  Transmission Date: 20170830
  Serious: Yes (Hospitalization)
  Sender: FDA-Public Use
  Company Number: JP-EISAI MEDICAL RESEARCH-EC-2017-025174

PATIENT
  Age: 44 Year
  Sex: Female
  Weight: 53 kg

DRUGS (19)
  1. ABSTRAL [Concomitant]
     Active Substance: FENTANYL CITRATE
  2. HALAVEN [Suspect]
     Active Substance: ERIBULIN MESYLATE
     Indication: INVASIVE BREAST CARCINOMA
     Route: 041
     Dates: start: 20150622, end: 20150803
  3. CONSTAN [Concomitant]
     Active Substance: ALPRAZOLAM
  4. REBAMIPIDE [Concomitant]
     Active Substance: REBAMIPIDE
  5. DENOTAS [Concomitant]
     Active Substance: CALCIUM CARBONATE\CHOLECALCIFEROL\MAGNESIUM CARBONATE
  6. EVAMYL [Concomitant]
     Active Substance: LORMETAZEPAM
  7. CERCINE [Concomitant]
     Active Substance: DIAZEPAM
  8. NEXIUM [Concomitant]
     Active Substance: ESOMEPRAZOLE MAGNESIUM
  9. HALAVEN [Suspect]
     Active Substance: ERIBULIN MESYLATE
     Route: 041
     Dates: start: 20150914
  10. TERPERAN [Concomitant]
     Active Substance: METOCLOPRAMIDE HYDROCHLORIDE
  11. MAGNESIUM OXIDE. [Concomitant]
     Active Substance: MAGNESIUM OXIDE
  12. LOXOPROFEN [Concomitant]
     Active Substance: LOXOPROFEN
  13. JANUVIA [Concomitant]
     Active Substance: SITAGLIPTIN PHOSPHATE
  14. HALAVEN [Suspect]
     Active Substance: ERIBULIN MESYLATE
     Route: 041
     Dates: start: 20150831, end: 20150831
  15. FENTOS [Concomitant]
     Active Substance: FENTANYL
  16. GLYCYRON [Concomitant]
     Active Substance: AMMONIUM GLYCYRRHIZATE\GLYCINE\METHIONINE
  17. RANMARK [Concomitant]
     Active Substance: DENOSUMAB
  18. TERPERAN [Concomitant]
     Active Substance: METOCLOPRAMIDE HYDROCHLORIDE
  19. CALONAL [Concomitant]
     Active Substance: ACETAMINOPHEN

REACTIONS (2)
  - Neutropenia [Recovered/Resolved]
  - Disseminated intravascular coagulation [Recovered/Resolved]

NARRATIVE: CASE EVENT DATE: 20150810
